FAERS Safety Report 4641686-6 (Version None)
Quarter: 2005Q2

REPORT INFORMATION
  Report Type: 
  Country: None (occurrence: None)
  Receive Date: 20050421
  Receipt Date: 20050406
  Transmission Date: 20051028
  Serious: Yes (Other)
  Sender: FDA-Public Use
  Company Number: S05-USA-01868-01

PATIENT
  Age: 31 Year
  Sex: Male

DRUGS (4)
  1. LEXAPRO [Suspect]
     Indication: ANXIETY
     Dates: end: 20050225
  2. LEXAPRO [Suspect]
     Indication: ANXIETY
     Dates: start: 20050223
  3. ALCOHOL [Suspect]
     Dates: start: 20050404, end: 20050404
  4. KLONOPIN [Concomitant]

REACTIONS (5)
  - AGGRESSION [None]
  - ALCOHOL USE [None]
  - ANGER [None]
  - PHYSICAL ASSAULT [None]
  - SCREAMING [None]
